FAERS Safety Report 4740372-1 (Version None)
Quarter: 2005Q3

REPORT INFORMATION
  Report Type: 
  Country: None (occurrence: None)
  Receive Date: 20050809
  Receipt Date: 20050809
  Transmission Date: 20060218
  Serious: Yes (Hospitalization, Other)
  Sender: FDA-Public Use
  Company Number: None

PATIENT
  Sex: Male
  Weight: 108.65 kg

DRUGS (2)
  1. BCNU [Suspect]
     Indication: ANAPLASTIC ASTROCYTOMA
     Dosage: SEE IMAGE
     Route: 042
     Dates: start: 20050601, end: 20050603
  2. RADIATION THERAPY [Suspect]
     Dosage: SEE IMAGE
     Dates: start: 20050601

REACTIONS (2)
  - HEMIPLEGIA [None]
  - NEUROPATHY [None]
